APPROVED DRUG PRODUCT: OSMOLEX ER
Active Ingredient: AMANTADINE HYDROCHLORIDE
Strength: EQ 161MG BASE
Dosage Form/Route: TABLET, EXTENDED RELEASE;ORAL
Application: N209410 | Product #004
Applicant: SUPERNUS PHARMACEUTICALS INC
Approved: Apr 22, 2020 | RLD: Yes | RS: No | Type: DISCN

PATENTS:
Patent 10213393 | Expires: Feb 15, 2038
Patent 10213394 | Expires: Feb 15, 2038
Patent 10500170 | Expires: Feb 15, 2038
Patent 10500171 | Expires: Feb 15, 2038
Patent 10512617 | Expires: Feb 15, 2038
Patent 10500172 | Expires: Feb 15, 2038
Patent 8389578 | Expires: Jan 22, 2028
Patent 8389578 | Expires: Jan 22, 2028
Patent 8252331 | Expires: Mar 13, 2030